FAERS Safety Report 7650003-9 (Version None)
Quarter: 2011Q3

REPORT INFORMATION
  Report Type: 
  Country: None (occurrence: None)
  Receive Date: 20110802
  Receipt Date: 20110720
  Transmission Date: 20111222
  Serious: Yes (Disabling, Other)
  Sender: FDA-Public Use
  Company Number: US-ASTRAZENECA-2008UW15675

PATIENT
  Age: 18894 Day
  Sex: Male
  Weight: 113.4 kg

DRUGS (29)
  1. SEROQUEL [Suspect]
     Indication: DEPRESSION
     Dosage: VARIOUS DOSES INCLUDING BUT NOT LIMITED TO 300 MG TWICE PER DAY
     Route: 048
     Dates: start: 20031003, end: 20070615
  2. SEROQUEL [Suspect]
     Route: 048
     Dates: start: 20070615
  3. LOPRESSOR [Concomitant]
  4. OMEPRAZOLE [Concomitant]
     Dates: start: 20070222
  5. WARFARIN SODIUM [Concomitant]
     Dates: start: 20070213
  6. VYTORIN [Concomitant]
     Dosage: 10-40 MG
     Dates: start: 20070711
  7. SEROQUEL [Suspect]
     Route: 048
     Dates: start: 20031003
  8. THORAZINE [Concomitant]
  9. ALTACE [Concomitant]
     Dates: start: 20031003
  10. DILTIAZEM [Concomitant]
     Dates: start: 20031003
  11. ASPIRIN [Concomitant]
     Dates: start: 20031003
  12. TERAZOSIN HCL [Concomitant]
     Dates: start: 20070801
  13. SEROQUEL [Suspect]
     Route: 048
     Dates: start: 20031003
  14. SEROQUEL [Suspect]
     Route: 048
     Dates: start: 20070615
  15. LEXAPRO [Concomitant]
     Dates: start: 20031003
  16. METOPROLOL TARTRATE [Concomitant]
     Dates: start: 20070213
  17. TRAZODONE HYDROCHLORIDE [Concomitant]
     Dates: start: 20070915
  18. CLARINEX [Concomitant]
     Dates: start: 20031003
  19. WARFARIN SODIUM [Concomitant]
     Dates: start: 20070530
  20. CITALOPRAM HYDROBROMIDE [Concomitant]
     Dates: start: 20070601
  21. HYDROCODONE BITARTRATE AND ACETAMINOPHEN [Concomitant]
     Dosage: 5-5
     Dates: start: 20070726
  22. CELEXA [Concomitant]
  23. PROTONIX [Concomitant]
     Dates: start: 20031003
  24. WARFARIN SODIUM [Concomitant]
     Dosage: 4-5 MG
     Dates: start: 20070913
  25. SEROQUEL [Suspect]
     Indication: BIPOLAR DISORDER
     Dosage: VARIOUS DOSES INCLUDING BUT NOT LIMITED TO 300 MG TWICE PER DAY
     Route: 048
     Dates: start: 20031003, end: 20070615
  26. TRAZODONE HYDROCHLORIDE [Concomitant]
     Dates: start: 20070514
  27. RYTHMOL [Concomitant]
     Dates: start: 20031003
  28. LISINOPRIL [Concomitant]
     Dates: start: 20070213
  29. HYOSCYAMINE SULFATE [Concomitant]
     Dates: start: 20070801

REACTIONS (9)
  - ASTHMA [None]
  - ATRIAL FIBRILLATION [None]
  - BLOOD CHOLESTEROL INCREASED [None]
  - HYPERLIPIDAEMIA [None]
  - CARDIAC DISORDER [None]
  - TYPE 2 DIABETES MELLITUS [None]
  - PNEUMONIA [None]
  - MYOCARDIAL INFARCTION [None]
  - DYSPNOEA [None]
